FAERS Safety Report 12117840 (Version 1)
Quarter: 2016Q1

REPORT INFORMATION
  Report Type: Spontaneous
  Country: US (occurrence: US)
  Receive Date: 20160226
  Receipt Date: 20160226
  Transmission Date: 20160526
  Serious: No
  Sender: FDA-Public Use
  Company Number: US-NATCO PHARMA LIMITED-1048403

PATIENT
  Age: 59 Year
  Sex: Female
  Weight: 72.73 kg

DRUGS (1)
  1. LETROZOLE. [Suspect]
     Active Substance: LETROZOLE
     Indication: BREAST CANCER
     Route: 048
     Dates: start: 20131201, end: 20141201

REACTIONS (5)
  - Deep vein thrombosis [Recovering/Resolving]
  - Gait disturbance [Recovering/Resolving]
  - Pain in extremity [Recovering/Resolving]
  - Renal pain [Recovered/Resolved]
  - Renal cyst [Recovering/Resolving]

NARRATIVE: CASE EVENT DATE: 20131201
